FAERS Safety Report 17034432 (Version 1)
Quarter: 2019Q4

REPORT INFORMATION
  Report Type: Spontaneous
  Country: US (occurrence: US)
  Receive Date: 20191115
  Receipt Date: 20191115
  Transmission Date: 20200122
  Serious: No
  Sender: FDA-Public Use
  Company Number: US-009507513-1910USA013771

PATIENT
  Age: 21 Year
  Sex: Female

DRUGS (1)
  1. NUVARING [Suspect]
     Active Substance: ETHINYL ESTRADIOL\ETONOGESTREL
     Indication: CONTRACEPTION
     Dosage: ONE RING REMAINED IN PLACE CONTINUOUSLY FOR THREE WEEKS, FOLLOWED BY A ONE-WEEK RING-FREE INTERVAL
     Route: 067
     Dates: start: 20191012

REACTIONS (2)
  - Product use issue [Unknown]
  - No adverse event [Unknown]

NARRATIVE: CASE EVENT DATE: 20191018
